FAERS Safety Report 25727079 (Version 1)
Quarter: 2025Q3

REPORT INFORMATION
  Report Type: Spontaneous
  Country: IN (occurrence: IN)
  Receive Date: 20250826
  Receipt Date: 20250826
  Transmission Date: 20251021
  Serious: Yes (Other)
  Sender: AMNEAL
  Company Number: IN-AMNEAL PHARMACEUTICALS-2025-AMRX-03202

PATIENT
  Age: 23 Year
  Sex: Female

DRUGS (3)
  1. DICLOFENAC SODIUM [Suspect]
     Active Substance: DICLOFENAC SODIUM
     Indication: Headache
     Route: 030
  2. DICLOFENAC SODIUM [Suspect]
     Active Substance: DICLOFENAC SODIUM
     Indication: Pain
  3. DICLOFENAC SODIUM [Suspect]
     Active Substance: DICLOFENAC SODIUM
     Indication: Chills

REACTIONS (1)
  - Embolia cutis medicamentosa [Recovered/Resolved]
